FAERS Safety Report 8438676-4 (Version None)
Quarter: 2012Q2

REPORT INFORMATION
  Report Type: 
  Country: None (occurrence: None)
  Receive Date: 20120615
  Receipt Date: 20120601
  Transmission Date: 20120825
  Serious: Yes (Other)
  Sender: FDA-Public Use
  Company Number: DE-RANBAXY-2012RR-56423

PATIENT
  Age: 50 Year
  Sex: Female

DRUGS (13)
  1. VENLAFAXINE HCL [Interacting]
     Indication: MAJOR DEPRESSION
     Dosage: 37.5 MG/DAY
     Route: 065
  2. VENLAFAXINE HCL [Interacting]
     Dosage: 150 MG/DAY
     Route: 065
  3. BISOPROLOL FUMARATE [Concomitant]
     Indication: ESSENTIAL HYPERTENSION
     Dosage: 2.5 MG/DAY
     Route: 065
  4. LORAZEPAM [Concomitant]
     Indication: SEDATION
     Dosage: 3 MG/DAY
     Route: 065
  5. VENLAFAXINE HCL [Interacting]
     Dosage: 75 MG/DAY, ON DAY 2
     Route: 065
  6. LEVOTHYROXINE SODIUM [Concomitant]
     Indication: HYPOTHYROIDISM
     Dosage: 125 A?G/DAY
     Route: 065
  7. ZOPICLONE [Concomitant]
     Indication: SEDATION
     Dosage: 7.5 MG, UNK
     Route: 065
  8. FLUOXETINE [Suspect]
     Indication: MAJOR DEPRESSION
     Dosage: 60 MG/DAY
     Route: 065
  9. VENLAFAXINE HCL [Interacting]
     Dosage: 150 MG/DAY, ON DAY 8
     Route: 065
  10. VENLAFAXINE HCL [Interacting]
     Dosage: 75 MG/DAY
     Route: 065
  11. VENLAFAXINE HCL [Interacting]
     Dosage: DOSAGE INCREASED SLOWLY TO 225 MG/DAY
     Route: 065
  12. VENLAFAXINE HCL [Interacting]
     Dosage: 225 MG/DAY, ON DAY 16
     Route: 065
  13. LITHIUM CARBONATE [Concomitant]
     Indication: PRODUCT USED FOR UNKNOWN INDICATION
     Dosage: 800 MG, UNK
     Route: 065

REACTIONS (6)
  - CONSTIPATION [None]
  - SEROTONIN SYNDROME [None]
  - DRUG INTERACTION [None]
  - ANTIDEPRESSANT DRUG LEVEL INCREASED [None]
  - DRUG INEFFECTIVE [None]
  - AGITATION [None]
